FAERS Safety Report 22313737 (Version 2)
Quarter: 2023Q2

REPORT INFORMATION
  Report Type: Spontaneous
  Country: GB (occurrence: GB)
  Receive Date: 20230512
  Receipt Date: 20230522
  Transmission Date: 20230721
  Serious: Yes (Death)
  Sender: FDA-Public Use
  Company Number: GB-MYLANLABS-2023M1049562

PATIENT
  Sex: Male
  Weight: 97.1 kg

DRUGS (10)
  1. CLOZARIL [Suspect]
     Active Substance: CLOZAPINE
     Indication: Schizophrenia
     Dosage: 400 MILLIGRAM, QD (100 MG MANE, 300MG NOCTE)
     Route: 048
     Dates: start: 20140818
  2. CLOZARIL [Suspect]
     Active Substance: CLOZAPINE
     Dosage: 25 MILLIGRAM, QD (25 MG MANE)
     Route: 048
  3. CLOZARIL [Suspect]
     Active Substance: CLOZAPINE
     Dosage: 500 MILLIGRAM, QD (500MGS/DAY )
     Route: 065
     Dates: start: 2017
  4. CLOZARIL [Suspect]
     Active Substance: CLOZAPINE
     Dosage: 425 MILLIGRAM, QD (425 MGS /DAY)
     Route: 065
     Dates: start: 2018
  5. ARIPIPRAZOLE [Concomitant]
     Active Substance: ARIPIPRAZOLE
     Dosage: 5 MILLIGRAM, QD
     Route: 065
  6. MIRTAZAPINE [Concomitant]
     Active Substance: MIRTAZAPINE
     Dosage: 45 MILLIGRAM, QD (45 MG AT NIGHT)
     Route: 065
  7. SCOPOLAMINE [Concomitant]
     Active Substance: SCOPOLAMINE
     Dosage: 150 MICROGRAM, BID (150 MICROGRAM TWICE DAILY)
     Route: 065
  8. LORAZEPAM [Concomitant]
     Active Substance: LORAZEPAM
     Dosage: 0.5 MILLIGRAM PRN ONCE DAILY (3 TABLETS PER WEEK)
     Route: 065
  9. SENNA [Concomitant]
     Active Substance: SENNA LEAF\SENNOSIDES\SENNOSIDES A AND B
     Dosage: 15 MILLIGRAM, QD (15 MGS AT NIGHT)
     Route: 065
  10. LACTULOSE [Concomitant]
     Active Substance: LACTULOSE
     Dosage: 15 MILLILITER PRN AT NIGHT
     Route: 065

REACTIONS (1)
  - Death [Fatal]

NARRATIVE: CASE EVENT DATE: 20230401
